FAERS Safety Report 19083076 (Version 1)
Quarter: 2021Q2

REPORT INFORMATION
  Report Type: Spontaneous
  Country: ES (occurrence: ES)
  Receive Date: 20210401
  Receipt Date: 20210401
  Transmission Date: 20210717
  Serious: Yes (Other)
  Sender: FDA-Public Use
  Company Number: ES-INCYTE CORPORATION-2021IN002890

PATIENT

DRUGS (8)
  1. JAKAVI [Suspect]
     Active Substance: RUXOLITINIB
     Indication: LEUKAEMIA
     Dosage: UNK
     Route: 048
     Dates: start: 20180718
  2. TEICOPLANINE [Concomitant]
     Active Substance: TEICOPLANIN
     Indication: PRODUCT USED FOR UNKNOWN INDICATION
     Dosage: UNK
     Route: 065
     Dates: start: 20190212
  3. GLASDEGIB [Suspect]
     Active Substance: GLASDEGIB
     Dosage: 50 UNK
     Route: 048
     Dates: start: 20190101, end: 20190108
  4. DASATINIB. [Suspect]
     Active Substance: DASATINIB
     Indication: LEUKAEMIA
     Dosage: UNK
     Route: 048
  5. GLASDEGIB [Suspect]
     Active Substance: GLASDEGIB
     Dosage: 50 MG, QD
     Route: 048
     Dates: start: 20190207, end: 20190226
  6. GLASDEGIB [Suspect]
     Active Substance: GLASDEGIB
     Dosage: 50 UNK
     Route: 048
     Dates: start: 20190118, end: 20190125
  7. GLASDEGIB [Suspect]
     Active Substance: GLASDEGIB
     Indication: GRAFT VERSUS HOST DISEASE
     Dosage: 50 MG, QD
     Route: 048
     Dates: start: 20181126, end: 20190226
  8. PREDNISONE. [Concomitant]
     Active Substance: PREDNISONE
     Indication: PRODUCT USED FOR UNKNOWN INDICATION
     Dosage: UNK
     Route: 065
     Dates: start: 20190101

REACTIONS (2)
  - Hepatotoxicity [Recovered/Resolved]
  - Product use in unapproved indication [Unknown]

NARRATIVE: CASE EVENT DATE: 20190226
